FAERS Safety Report 4959903-1 (Version None)
Quarter: 2006Q1

REPORT INFORMATION
  Report Type: 
  Country: None (occurrence: None)
  Receive Date: 20060331
  Receipt Date: 20051003
  Transmission Date: 20060701
  Serious: Yes (Hospitalization)
  Sender: FDA-Public Use
  Company Number: US-MERCK-0510USA02734

PATIENT
  Age: 67 Year
  Sex: Female
  Weight: 75 kg

DRUGS (1)
  1. VIOXX [Suspect]
     Indication: ARTHRITIS
     Route: 048
     Dates: start: 20000106, end: 20040309

REACTIONS (9)
  - ANXIETY [None]
  - ARTHROPATHY [None]
  - BLOOD PRESSURE INADEQUATELY CONTROLLED [None]
  - DEPRESSION [None]
  - FALL [None]
  - HYPONATRAEMIA [None]
  - ISCHAEMIC STROKE [None]
  - NON-CARDIAC CHEST PAIN [None]
  - ORTHOSTATIC HYPOTENSION [None]
